APPROVED DRUG PRODUCT: QUELICIN
Active Ingredient: SUCCINYLCHOLINE CHLORIDE
Strength: 20MG/ML
Dosage Form/Route: INJECTABLE;INJECTION
Application: N008845 | Product #006 | TE Code: AP
Applicant: HOSPIRA INC
Approved: Approved Prior to Jan 1, 1982 | RLD: Yes | RS: Yes | Type: RX